FAERS Safety Report 15469394 (Version 3)
Quarter: 2019Q1

REPORT INFORMATION
  Report Type: Spontaneous
  Country: JP (occurrence: JP)
  Receive Date: 20181005
  Receipt Date: 20190328
  Transmission Date: 20190417
  Serious: Yes (Hospitalization)
  Sender: FDA-Public Use
  Company Number: JP-009507513-1809JPN003124J

PATIENT
  Age: 60 Year
  Sex: Male
  Weight: 53 kg

DRUGS (11)
  1. LIALDA [Concomitant]
     Active Substance: MESALAMINE
     Indication: COLITIS ULCERATIVE
     Dosage: 4800 MILLIGRAM, QD
     Route: 048
     Dates: start: 20180306, end: 20190214
  2. BROTIZOLAM OD [Concomitant]
     Indication: INSOMNIA
     Dosage: 0.25 MILLIGRAM, QD
     Route: 048
     Dates: start: 20170519, end: 20190214
  3. TEPRENONE [Concomitant]
     Active Substance: TEPRENONE
     Indication: GASTRIC ULCER
     Dosage: 50 MILLIGRAM, TID
     Route: 048
     Dates: start: 20180818, end: 20180921
  4. LOXOPROFEN [Concomitant]
     Active Substance: LOXOPROFEN
     Indication: BACK PAIN
     Dosage: 60 MILLIGRAM, TID
     Route: 048
     Dates: start: 20170607, end: 20181119
  5. TAKECAB [Concomitant]
     Active Substance: VONOPRAZAN FUMURATE
     Indication: GASTRIC ULCER
     Dosage: 20 MILLIGRAM, QD
     Route: 048
     Dates: start: 20180413, end: 20190214
  6. KEYTRUDA [Suspect]
     Active Substance: PEMBROLIZUMAB
     Indication: NON-SMALL CELL LUNG CANCER
     Dosage: 200 MILLIGRAM, Q3W
     Route: 041
     Dates: start: 20180822, end: 20180822
  7. MIYA-BM [Concomitant]
     Active Substance: CLOSTRIDIUM BUTYRICUM SPORES STRAIN M-55
     Indication: DYSBACTERIOSIS
     Dosage: 1 DOSAGE FORM, TID
     Route: 048
     Dates: start: 20171230, end: 20190214
  8. ADONA [Concomitant]
     Indication: HAEMORRHAGE
     Dosage: 30 MILLIGRAM, TID
     Route: 048
     Dates: start: 20170317, end: 20190214
  9. PENTASA [Concomitant]
     Active Substance: MESALAMINE
     Indication: COLITIS ULCERATIVE
     Dosage: 1 GRAM, QD
     Dates: start: 20180316, end: 20181218
  10. EPERISONE HYDROCHLORIDE [Concomitant]
     Active Substance: EPERISONE HYDROCHLORIDE
     Indication: BACK PAIN
     Dosage: 50 MILLIGRAM, TID
     Route: 048
     Dates: start: 20180817, end: 20190214
  11. VITAMEDIN [Concomitant]
     Active Substance: CYANOCOBALAMIN\PYRIDOXINE HYDROCHLORIDE\THIAMINE
     Indication: VITAMIN B1 DEFICIENCY
     Dosage: 25, TID
     Route: 048
     Dates: start: 20170513, end: 20190214

REACTIONS (1)
  - Liver disorder [Recovered/Resolved]

NARRATIVE: CASE EVENT DATE: 20180914
